FAERS Safety Report 8559735-1 (Version None)
Quarter: 2012Q3

REPORT INFORMATION
  Report Type: 
  Country: None (occurrence: None)
  Receive Date: 20120802
  Receipt Date: 20120730
  Transmission Date: 20120928
  Serious: No
  Sender: FDA-Public Use
  Company Number: US-PFIZER INC-2012184748

PATIENT
  Sex: Female
  Weight: 90.703 kg

DRUGS (1)
  1. LEVOXYL [Suspect]
     Dosage: 0.15 MG, 1X/DAY
     Dates: start: 19920101

REACTIONS (4)
  - FEELING ABNORMAL [None]
  - NERVOUSNESS [None]
  - POLLAKIURIA [None]
  - RESPIRATORY RATE INCREASED [None]
